FAERS Safety Report 9576167 (Version 1)
Quarter: 2013Q4

REPORT INFORMATION
  Report Type: Spontaneous
  Country: US (occurrence: US)
  Receive Date: 20131001
  Receipt Date: 20131001
  Transmission Date: 20140711
  Serious: No
  Sender: FDA-Public Use
  Company Number: US-AMGEN-USASP2013001574

PATIENT
  Sex: Female
  Weight: 93.42 kg

DRUGS (6)
  1. ENBREL [Suspect]
     Indication: RHEUMATOID ARTHRITIS
     Dosage: 50 MG, QWK
     Route: 058
  2. CELEBREX [Concomitant]
     Dosage: 50 MG, UNK
  3. HYDROXYCHLOROQUINE [Concomitant]
     Dosage: 200 MG, UNK
  4. PRILOSEC                           /00661201/ [Concomitant]
     Dosage: 10 MG, UNK
  5. VITAMIN D                          /00107901/ [Concomitant]
     Dosage: 1000 UNIT, UNK
  6. MULTIVITAMINS, PLAIN [Concomitant]
     Dosage: UNK

REACTIONS (2)
  - Tooth abscess [Unknown]
  - Nasopharyngitis [Unknown]
